FAERS Safety Report 16688021 (Version 1)
Quarter: 2019Q3

REPORT INFORMATION
  Report Type: Spontaneous
  Country: DE (occurrence: DE)
  Receive Date: 20190809
  Receipt Date: 20190809
  Transmission Date: 20191004
  Serious: Yes (Hospitalization)
  Sender: FDA-Public Use
  Company Number: PHHY2019DE184715

PATIENT
  Age: 78 Year
  Sex: Female

DRUGS (3)
  1. DEXAMETHASONE. [Concomitant]
     Active Substance: DEXAMETHASONE
     Indication: PRODUCT USED FOR UNKNOWN INDICATION
     Dosage: 8 MG, QD (DILUTED IN 1000 ML 0.9% NACL)
     Route: 065
     Dates: start: 20190726, end: 20190726
  2. CARBOPLATIN. [Suspect]
     Active Substance: CARBOPLATIN
     Indication: OVARIAN CANCER
     Dosage: 337 MG, UNK (STRENGTH: 600 MG VIAL, DILUTED IN 5% GLUCOSE)
     Route: 042
     Dates: start: 20190726, end: 20190726
  3. ONDANSETRON [Concomitant]
     Active Substance: ONDANSETRON
     Indication: PRODUCT USED FOR UNKNOWN INDICATION
     Dosage: 8 MG, QD (DILUTED IN 100 ML 0.9% NACL)
     Route: 042
     Dates: start: 20190726, end: 20190726

REACTIONS (2)
  - Loss of consciousness [Unknown]
  - Circulatory collapse [Unknown]

NARRATIVE: CASE EVENT DATE: 20190726
